FAERS Safety Report 5588161-2 (Version None)
Quarter: 2008Q1

REPORT INFORMATION
  Report Type: 
  Country: None (occurrence: None)
  Receive Date: 20080109
  Receipt Date: 20080109
  Transmission Date: 20080703
  Serious: Yes (Hospitalization)
  Sender: FDA-Public Use
  Company Number: None

PATIENT
  Age: 63 Year
  Sex: Male

DRUGS (2)
  1. LITHIUM CARBONATE [Suspect]
     Dosage: 300MG TID PO
     Route: 048
     Dates: start: 19950313
  2. LISINOPRIL [Suspect]
     Dosage: 10MG EVERY DAY PO
     Route: 048
     Dates: start: 20070904, end: 20071007

REACTIONS (9)
  - DROOLING [None]
  - FAECAL INCONTINENCE [None]
  - GAIT DISTURBANCE [None]
  - HALLUCINATION [None]
  - POLYDIPSIA [None]
  - POLYURIA [None]
  - RENAL FAILURE ACUTE [None]
  - THERAPEUTIC AGENT TOXICITY [None]
  - URINARY INCONTINENCE [None]
